FAERS Safety Report 6222974-9 (Version None)
Quarter: 2009Q2

REPORT INFORMATION
  Report Type: 
  Country: None (occurrence: None)
  Receive Date: 20090611
  Receipt Date: 20090603
  Transmission Date: 20091009
  Serious: Yes (Disabling, Other)
  Sender: FDA-Public Use
  Company Number: US-PFIZER INC-2009155695

PATIENT
  Sex: Male

DRUGS (7)
  1. LIPITOR [Suspect]
     Indication: HYPERLIPIDAEMIA
     Dosage: 20 MG, UNK
     Dates: start: 20010313, end: 20040601
  2. LIPITOR [Suspect]
     Indication: TRANSIENT ISCHAEMIC ATTACK
  3. ZOCOR [Suspect]
  4. VYTORIN [Suspect]
  5. CRESTOR [Suspect]
  6. PLAVIX [Concomitant]
     Dosage: UNK
  7. NORVASC [Concomitant]
     Dosage: UNK

REACTIONS (3)
  - IMPAIRED WORK ABILITY [None]
  - MYALGIA [None]
  - PAIN [None]
